FAERS Safety Report 6121336-2 (Version None)
Quarter: 2009Q1

REPORT INFORMATION
  Report Type: 
  Country: None (occurrence: None)
  Receive Date: 20090313
  Receipt Date: 20090304
  Transmission Date: 20090719
  Serious: Yes (Hospitalization)
  Sender: FDA-Public Use
  Company Number: 2008EU002390

PATIENT
  Age: 35 Year
  Sex: Female
  Weight: 58.9 kg

DRUGS (9)
  1. ALEFACEPT INJECTION BLINDED(CODE NOT BROKEN) INJECTION [Suspect]
     Indication: RENAL TRANSPLANT
     Dosage: WEEKLY, SUBCUTANEOUS
     Route: 058
     Dates: start: 20080914, end: 20081014
  2. PROGRAF [Suspect]
     Indication: RENAL TRANSPLANT
     Dosage: BID, ORAL
     Route: 048
     Dates: start: 20080914, end: 20081016
  3. METHYLPREDNISOLONE [Suspect]
     Indication: RENAL TRANSPLANT
     Dosage: ORAL
     Route: 048
     Dates: start: 20080914
  4. CELLCEPT [Suspect]
     Indication: RENAL TRANSPLANT
     Dosage: ORAL
     Route: 048
     Dates: start: 20080914
  5. FUROSEMIDE [Concomitant]
  6. CARVEDILOL [Concomitant]
  7. BACTRIM [Concomitant]
  8. NISTATIN (NYSTATIN) [Concomitant]
  9. LANSOPRAZOLE [Concomitant]

REACTIONS (3)
  - COMPLICATIONS OF TRANSPLANTED KIDNEY [None]
  - DIALYSIS [None]
  - GRAFT ISCHAEMIA [None]
